FAERS Safety Report 4957355-9 (Version None)
Quarter: 2006Q1

REPORT INFORMATION
  Report Type: 
  Country: None (occurrence: None)
  Receive Date: 20060327
  Receipt Date: 20060320
  Transmission Date: 20060701
  Serious: Yes (Life-Threatening)
  Sender: FDA-Public Use
  Company Number: 200611084GDS

PATIENT
  Age: 48 Year
  Sex: Male
  Weight: 58 kg

DRUGS (7)
  1. AVELOX [Suspect]
     Indication: BRONCHITIS ACUTE
     Dosage: 400 MG, TOTAL DAILY
     Dates: start: 20051020, end: 20051022
  2. FORASEQ [Concomitant]
  3. FLUIMUCIL [Concomitant]
  4. FORMOTEROL [Concomitant]
  5. BUDESONIDE [Concomitant]
  6. PHENYTOIN [Concomitant]
  7. PHENOBARBITAL TAB [Concomitant]

REACTIONS (3)
  - CONVULSION [None]
  - COUGH [None]
  - FATIGUE [None]
